FAERS Safety Report 17313808 (Version 1)
Quarter: 2020Q1

REPORT INFORMATION
  Report Type: Spontaneous
  Country: US (occurrence: US)
  Receive Date: 20200124
  Receipt Date: 20200124
  Transmission Date: 20200409
  Serious: No
  Sender: FDA-Public Use
  Company Number: US-ELI_LILLY_AND_COMPANY-US202001000549

PATIENT
  Age: 78 Year
  Sex: Female

DRUGS (4)
  1. HUMALOG [Suspect]
     Active Substance: INSULIN LISPRO
     Dosage: 2-3 U, EACH EVENING (FOR DINNER PLUS SLIDING SCALE)
     Route: 058
     Dates: start: 201906
  2. HUMALOG [Suspect]
     Active Substance: INSULIN LISPRO
     Dosage: 1-2 U, DAILY (WITH LUNCH PLUS SLIDING SCALE)
     Route: 058
     Dates: start: 201906
  3. HUMALOG [Suspect]
     Active Substance: INSULIN LISPRO
     Indication: TYPE 1 DIABETES MELLITUS
     Dosage: 1 U, EACH MORNING (PLUS SLIDING SCALE)
     Route: 058
     Dates: start: 201906
  4. LANTUS [Concomitant]
     Active Substance: INSULIN GLARGINE
     Indication: TYPE 1 DIABETES MELLITUS
     Dosage: UNK UNK, UNKNOWN
     Route: 065

REACTIONS (3)
  - Product dose omission [Unknown]
  - Blood glucose increased [Recovering/Resolving]
  - Product storage error [Unknown]

NARRATIVE: CASE EVENT DATE: 20191229
